FAERS Safety Report 25543073 (Version 1)
Quarter: 2025Q3

REPORT INFORMATION
  Report Type: Spontaneous
  Country: US (occurrence: US)
  Receive Date: 20250711
  Receipt Date: 20250711
  Transmission Date: 20251021
  Serious: No
  Sender: GLENMARK
  Company Number: US-GLENMARK PHARMACEUTICALS-2024GMK093124

PATIENT

DRUGS (1)
  1. ADAPALENE [Suspect]
     Active Substance: ADAPALENE
     Indication: Acne
     Route: 061
     Dates: end: 202406

REACTIONS (4)
  - Photosensitivity reaction [Recovered/Resolved]
  - Skin reaction [Recovered/Resolved]
  - Skin burning sensation [Recovered/Resolved]
  - Product use issue [Unknown]
